FAERS Safety Report 23835892 (Version 1)
Quarter: 2024Q2

REPORT INFORMATION
  Report Type: Spontaneous
  Country: US (occurrence: None)
  Receive Date: 20240507
  Receipt Date: 20240507
  Transmission Date: 20240716
  Serious: Yes (Life-Threatening, Hospitalization)
  Sender: FDA-Public Use
  Company Number: None

PATIENT
  Age: 67 Year
  Sex: Male
  Weight: 72.1 kg

DRUGS (2)
  1. VERAPAMIL HYDROCHLORIDE [Suspect]
     Active Substance: VERAPAMIL HYDROCHLORIDE
     Indication: Hypertension
     Dosage: FREQUENCY : DAILY;?
     Route: 048
     Dates: start: 20211031, end: 20230816
  2. FLUCONAZOLE [Suspect]
     Active Substance: FLUCONAZOLE

REACTIONS (3)
  - Atrioventricular block first degree [None]
  - Asthenia [None]
  - Drug hypersensitivity [None]

NARRATIVE: CASE EVENT DATE: 20230816
